FAERS Safety Report 24737054 (Version 1)
Quarter: 2024Q4

REPORT INFORMATION
  Report Type: Spontaneous
  Country: ES (occurrence: ES)
  Receive Date: 20241216
  Receipt Date: 20241216
  Transmission Date: 20250114
  Serious: Yes (Other)
  Sender: ROCHE
  Company Number: None

PATIENT
  Age: 84 Year
  Sex: Female

DRUGS (4)
  1. ALTEPLASE [Suspect]
     Active Substance: ALTEPLASE
     Indication: Cerebrovascular accident
     Route: 042
     Dates: start: 20241031, end: 20241031
  2. ENALAPRIL CINFA 10 mg COMPRIMIDOS , 28 comprimidos [Concomitant]
     Indication: Product used for unknown indication
     Route: 048
     Dates: start: 20240520
  3. LORAZEPAM NORMON 1 MG COMPRIMIDOS EFG, 50 comprimidos [Concomitant]
     Indication: Product used for unknown indication
     Route: 048
     Dates: start: 20240520
  4. DEPRAX 100 MG COMPRIMIDOS RECUBIERTOS CON PELICULA EFG , 60 comprimido [Concomitant]
     Indication: Product used for unknown indication
     Route: 048
     Dates: start: 20230925

REACTIONS (4)
  - Urticaria [Recovered/Resolved]
  - Pruritus [Recovered/Resolved]
  - Nausea [Recovered/Resolved]
  - Oxygen saturation decreased [Recovered/Resolved]

NARRATIVE: CASE EVENT DATE: 20241031
